FAERS Safety Report 15594707 (Version 2)
Quarter: 2019Q3

REPORT INFORMATION
  Report Type: Spontaneous
  Country: US (occurrence: US)
  Receive Date: 20181106
  Receipt Date: 20190729
  Transmission Date: 20191004
  Serious: No
  Sender: FDA-Public Use
  Company Number: US-SA-2018SA302935

PATIENT
  Age: 64 Year
  Sex: Female

DRUGS (1)
  1. KEVZARA [Suspect]
     Active Substance: SARILUMAB
     Indication: RHEUMATOID ARTHRITIS
     Dosage: 200 MG, QOW
     Route: 058
     Dates: start: 20180405, end: 2019

REACTIONS (5)
  - Pain in extremity [Unknown]
  - Inflammation [Unknown]
  - Musculoskeletal pain [Unknown]
  - Product dose omission [Unknown]
  - Injection site erythema [Unknown]

NARRATIVE: CASE EVENT DATE: 2019
